FAERS Safety Report 13956663 (Version 1)
Quarter: 2017Q3

REPORT INFORMATION
  Report Type: Spontaneous
  Country: US (occurrence: US)
  Receive Date: 20170911
  Receipt Date: 20170911
  Transmission Date: 20171128
  Serious: No
  Sender: FDA-Public Use
  Company Number: US-LEXICON PHARMACEUTICALS, INC-17-1606-00684

PATIENT
  Age: 53 Year
  Sex: Female

DRUGS (7)
  1. PLAVIX [Concomitant]
  2. CELEBREX [Concomitant]
  3. LISINOPRIL [Concomitant]
  4. TELOTRISTAT ETHYL [Suspect]
     Active Substance: TELOTRISTAT ETHYL
     Indication: ENDOCRINE NEOPLASM MALIGNANT
     Route: 048
     Dates: start: 20170630, end: 20170804
  5. SIMVASTATIN [Concomitant]
  6. METOPROLOL [Concomitant]
  7. SOMATULINE DEPOT [Concomitant]
     Active Substance: LANREOTIDE ACETATE

REACTIONS (2)
  - Flatulence [Recovered/Resolved]
  - Constipation [Recovered/Resolved]

NARRATIVE: CASE EVENT DATE: 20170721
